FAERS Safety Report 18746250 (Version 2)
Quarter: 2021Q1

REPORT INFORMATION
  Report Type: Report from Study
  Country: US (occurrence: US)
  Receive Date: 20210115
  Receipt Date: 20210118
  Transmission Date: 20210419
  Serious: No
  Sender: FDA-Public Use
  Company Number: NVSC2021US008416

PATIENT
  Age: 29 Year
  Sex: Female

DRUGS (2)
  1. COSENTYX [Suspect]
     Active Substance: SECUKINUMAB
     Dosage: UNK
     Route: 065
     Dates: start: 20210105, end: 20210105
  2. COSENTYX [Suspect]
     Active Substance: SECUKINUMAB
     Indication: URTICARIA
     Dosage: 300 MG, QW
     Route: 058
     Dates: start: 20210105, end: 20210114

REACTIONS (2)
  - Urticaria [Unknown]
  - Pruritus [Unknown]

NARRATIVE: CASE EVENT DATE: 20210105
